FAERS Safety Report 11135129 (Version 1)
Quarter: 2015Q2

REPORT INFORMATION
  Report Type: Spontaneous
  Country: FR (occurrence: FR)
  Receive Date: 20150525
  Receipt Date: 20150525
  Transmission Date: 20150821
  Serious: Yes (Other)
  Sender: FDA-Public Use
  Company Number: FR-009507513-1505FRA010659

PATIENT
  Age: 15 Year
  Sex: Female

DRUGS (1)
  1. GRAZAX [Suspect]
     Active Substance: PHLEUM PRATENSE POLLEN
     Indication: IMMUNE TOLERANCE INDUCTION
     Dosage: 75000 SQ, QD
     Route: 060
     Dates: start: 20150120, end: 20150125

REACTIONS (2)
  - Keratitis [Not Recovered/Not Resolved]
  - Conjunctival ulcer [Not Recovered/Not Resolved]

NARRATIVE: CASE EVENT DATE: 20150125
